FAERS Safety Report 8456858 (Version 9)
Quarter: 2012Q4

REPORT INFORMATION
  Report Type: 
  Country: GB (occurrence: GB)
  Receive Date: 20120313
  Receipt Date: 20120925
  Transmission Date: 20130627
  Serious: Yes (Other)
  Sender: FDA-Public Use
  Company Number: GB-ABBOTT-12P-167-0912691-00

PATIENT
  Age: 81 Year
  Sex: Female
  Weight: 81 kg

DRUGS (14)
  1. KLARICID [Suspect]
     Indication: LOWER RESPIRATORY TRACT INFECTION
     Dates: start: 20120224
  2. LERCANIDIPINE HYDROCHLORIDE [Interacting]
     Indication: HYPERTENSION
     Dates: start: 20111115
  3. ALLOPURINOL [Concomitant]
     Indication: PRODUCT USED FOR UNKNOWN INDICATION
     Dates: start: 20111115
  4. ATENOLOL [Concomitant]
     Indication: SUPRAVENTRICULAR TACHYCARDIA
     Dates: start: 20111115
  5. DOXAZOSIN [Concomitant]
     Indication: PRODUCT USED FOR UNKNOWN INDICATION
     Dates: start: 20111115
  6. LISINOPRIL [Concomitant]
     Indication: PRODUCT USED FOR UNKNOWN INDICATION
     Dates: start: 20111115
  7. QVAR [Concomitant]
     Indication: PRODUCT USED FOR UNKNOWN INDICATION
     Dates: start: 20111115, end: 20111213
  8. QVAR [Concomitant]
     Dates: start: 20120215
  9. SALBUTAMOL [Concomitant]
     Indication: PRODUCT USED FOR UNKNOWN INDICATION
     Dates: start: 20111115, end: 20111213
  10. SALBUTAMOL [Concomitant]
     Dates: start: 20120215
  11. SIMVASTATIN [Concomitant]
     Indication: PRODUCT USED FOR UNKNOWN INDICATION
     Dates: start: 20111115
  12. AMOXICILLIN\CLAVULANATE POTASSIUM [Concomitant]
     Indication: PRODUCT USED FOR UNKNOWN INDICATION
     Dates: start: 20111229, end: 20120112
  13. AMOXICILLIN\CLAVULANATE POTASSIUM [Concomitant]
     Dates: start: 20120224
  14. ASPIRIN [Concomitant]
     Indication: PRODUCT USED FOR UNKNOWN INDICATION
     Dates: start: 20120224

REACTIONS (5)
  - Atrial fibrillation [Recovered/Resolved]
  - Hypotension [Recovering/Resolving]
  - Drug interaction [Recovered/Resolved]
  - Dizziness [Recovered/Resolved]
  - Blood pressure decreased [Unknown]
